FAERS Safety Report 4378372-6 (Version None)
Quarter: 2004Q2

REPORT INFORMATION
  Report Type: 
  Country: None (occurrence: None)
  Receive Date: 20040616
  Receipt Date: 20040122
  Transmission Date: 20050107
  Serious: Yes (Other)
  Sender: FDA-Public Use
  Company Number: PHNU2004DE00688

PATIENT
  Age: 36 Year
  Sex: Female

DRUGS (1)
  1. TEGRETOL [Suspect]
     Dosage: FOETAL DRUG EXPOSURE VIA FATHER

REACTIONS (4)
  - CERVIX CERCLAGE PROCEDURE [None]
  - DRUG EXPOSURE DURING PREGNANCY [None]
  - IMMUNE SYSTEM DISORDER [None]
  - NORMAL NEWBORN [None]
